FAERS Safety Report 8853150 (Version 5)
Quarter: 2016Q1

REPORT INFORMATION
  Report Type: Report from Study
  Country: AU (occurrence: AU)
  Receive Date: 20121022
  Receipt Date: 20160201
  Transmission Date: 20160526
  Serious: Yes (Hospitalization, Other)
  Sender: FDA-Public Use
  Company Number: AU-ROCHE-1143756

PATIENT
  Age: 58 Year
  Sex: Female

DRUGS (19)
  1. ACTEMRA [Suspect]
     Active Substance: TOCILIZUMAB
     Route: 042
  2. CRESTOR [Suspect]
     Active Substance: ROSUVASTATIN CALCIUM
     Indication: BLOOD CHOLESTEROL
     Route: 048
  3. CORTISONE [Concomitant]
     Active Substance: CORTISONE\HYDROCORTISONE
  4. MIRTAZAPINE. [Concomitant]
     Active Substance: MIRTAZAPINE
     Route: 048
     Dates: start: 20150305
  5. ACTEMRA [Suspect]
     Active Substance: TOCILIZUMAB
     Route: 042
  6. CLARITHROMYCIN. [Concomitant]
     Active Substance: CLARITHROMYCIN
     Route: 048
     Dates: start: 20130814
  7. ASPRO CLEAR [Concomitant]
  8. ZYRTEC [Concomitant]
     Active Substance: CETIRIZINE HYDROCHLORIDE
  9. CICLESONIDE [Concomitant]
     Active Substance: CICLESONIDE
     Route: 045
     Dates: start: 20150206
  10. PREDNISOLONE. [Concomitant]
     Active Substance: PREDNISOLONE
     Indication: SWELLING
     Route: 048
  11. PREDNISOLONE. [Concomitant]
     Active Substance: PREDNISOLONE
     Indication: ARTHRITIS
     Route: 048
  12. TRAMADOL. [Concomitant]
     Active Substance: TRAMADOL
     Indication: PAIN
  13. PANADEINE FORTE [Concomitant]
     Active Substance: ACETAMINOPHEN\CODEINE PHOSPHATE
  14. ACTEMRA [Suspect]
     Active Substance: TOCILIZUMAB
     Indication: RHEUMATOID ARTHRITIS
     Route: 042
     Dates: start: 20120928
  15. ARAVA [Concomitant]
     Active Substance: LEFLUNOMIDE
     Indication: RHEUMATOID ARTHRITIS
     Route: 048
  16. ACTEMRA [Suspect]
     Active Substance: TOCILIZUMAB
     Route: 042
  17. NEXIUM [Concomitant]
     Active Substance: ESOMEPRAZOLE MAGNESIUM
     Indication: GASTROOESOPHAGEAL REFLUX DISEASE
  18. NEXIUM [Concomitant]
     Active Substance: ESOMEPRAZOLE MAGNESIUM
     Indication: GASTROOESOPHAGEAL REFLUX DISEASE
     Route: 048
  19. INDERAL [Concomitant]
     Active Substance: PROPRANOLOL HYDROCHLORIDE
     Route: 048
     Dates: start: 20150305

REACTIONS (49)
  - Ear pain [Recovered/Resolved]
  - Pain in extremity [Not Recovered/Not Resolved]
  - Back pain [Not Recovered/Not Resolved]
  - Arthralgia [Not Recovered/Not Resolved]
  - Sinus congestion [Recovering/Resolving]
  - Musculoskeletal stiffness [Not Recovered/Not Resolved]
  - Excessive cerumen production [Unknown]
  - Lip ulceration [Not Recovered/Not Resolved]
  - Arthropod bite [Recovering/Resolving]
  - Musculoskeletal pain [Not Recovered/Not Resolved]
  - Musculoskeletal pain [Unknown]
  - Contusion [Unknown]
  - Upper respiratory tract infection [Recovering/Resolving]
  - Abdominal pain upper [Recovered/Resolved]
  - Laceration [Unknown]
  - Abdominal abscess [Unknown]
  - Groin pain [Recovering/Resolving]
  - Pain in extremity [Recovering/Resolving]
  - Limb injury [Recovering/Resolving]
  - Pain in extremity [Recovered/Resolved]
  - Localised infection [Recovered/Resolved]
  - Joint stiffness [Not Recovered/Not Resolved]
  - Neck pain [Unknown]
  - Musculoskeletal stiffness [Unknown]
  - Anxiety [Unknown]
  - Drug hypersensitivity [Unknown]
  - Joint swelling [Recovering/Resolving]
  - Hypoaesthesia [Not Recovered/Not Resolved]
  - Acne [Recovering/Resolving]
  - Joint swelling [Recovered/Resolved]
  - Headache [Recovered/Resolved]
  - Stress [Unknown]
  - Headache [Not Recovered/Not Resolved]
  - Poor quality sleep [Not Recovered/Not Resolved]
  - Hot flush [Recovered/Resolved]
  - Peripheral swelling [Recovering/Resolving]
  - Nasopharyngitis [Recovering/Resolving]
  - Nausea [Unknown]
  - Ear discomfort [Unknown]
  - Headache [Recovering/Resolving]
  - Influenza [Recovered/Resolved]
  - Neck pain [Not Recovered/Not Resolved]
  - Pain [Unknown]
  - Varicose vein [Unknown]
  - Fatigue [Unknown]
  - Fatigue [Not Recovered/Not Resolved]
  - Meniscus injury [Unknown]
  - Cardiac murmur [Unknown]
  - Cough [Recovered/Resolved]

NARRATIVE: CASE EVENT DATE: 20121001
